FAERS Safety Report 4585536-5 (Version None)
Quarter: 2004Q4

REPORT INFORMATION
  Report Type: 
  Country: None (occurrence: None)
  Receive Date: 20041220
  Receipt Date: 20041220
  Transmission Date: 20050328
  Serious: No
  Sender: FDA-Public Use
  Company Number: None

PATIENT
  Age: 7 Year
  Sex: Male

DRUGS (2)
  1. TEGRETOL [Suspect]
     Dosage: TABLET
  2. TEGRETOL [Suspect]
     Dosage: TABLET

REACTIONS (2)
  - DRUG TOXICITY [None]
  - MEDICATION ERROR [None]
